FAERS Safety Report 8407652-X (Version None)
Quarter: 2012Q2

REPORT INFORMATION
  Report Type: 
  Country: None (occurrence: None)
  Receive Date: 20120604
  Receipt Date: 20120531
  Transmission Date: 20120825
  Serious: Yes (Hospitalization, Other)
  Sender: FDA-Public Use
  Company Number: US-AMGEN-USASP2012027663

PATIENT
  Age: 61 Year
  Sex: Female
  Weight: 93 kg

DRUGS (6)
  1. FOLIC ACID [Concomitant]
     Indication: RHEUMATOID ARTHRITIS
     Dosage: 1 MG, QD
     Route: 048
     Dates: start: 19950101, end: 20120303
  2. ENBREL [Suspect]
     Dosage: 50 MG, QWK
     Dates: start: 20050101, end: 20120317
  3. BENICAR [Concomitant]
     Indication: HYPERTENSION
     Dosage: UNK UNK, QD
     Route: 048
     Dates: start: 20000101, end: 20120303
  4. ENBREL [Suspect]
     Indication: RHEUMATOID ARTHRITIS
     Dosage: 50 MG, QWK
     Route: 058
     Dates: start: 20060806, end: 20120303
  5. METHOTREXATE [Concomitant]
     Indication: RHEUMATOID ARTHRITIS
     Dosage: 10 MG, QWK
     Route: 048
     Dates: start: 19950101, end: 20120303
  6. MOBIC [Concomitant]
     Indication: RHEUMATOID ARTHRITIS
     Dosage: UNK
     Route: 048
     Dates: start: 20060101, end: 20120303

REACTIONS (3)
  - HIP ARTHROPLASTY [None]
  - NON-HODGKIN'S LYMPHOMA [None]
  - ARTHRALGIA [None]
